FAERS Safety Report 11317127 (Version 3)
Quarter: 2016Q3

REPORT INFORMATION
  Report Type: Report from Study
  Country: JP (occurrence: JP)
  Receive Date: 20150728
  Receipt Date: 20160708
  Transmission Date: 20161109
  Serious: Yes (Life-Threatening, Hospitalization, Other)
  Sender: FDA-Public Use
  Company Number: JP-ALEXION-A201401173

PATIENT
  Age: 74 Year
  Sex: Male
  Weight: 57 kg

DRUGS (3)
  1. SOLIRIS [Suspect]
     Active Substance: ECULIZUMAB
     Indication: PAROXYSMAL NOCTURNAL HAEMOGLOBINURIA
     Dosage: 600 MG, QW
     Route: 042
     Dates: start: 20130813, end: 20130903
  2. PREDNISOLON                        /00016201/ [Concomitant]
     Active Substance: PREDNISOLONE
     Indication: PAROXYSMAL NOCTURNAL HAEMOGLOBINURIA
     Dosage: 10 MG, DAILY
     Route: 065
     Dates: start: 20130713
  3. SOLIRIS [Suspect]
     Active Substance: ECULIZUMAB
     Dosage: 900 MG, Q2W
     Route: 042
     Dates: start: 20130910

REACTIONS (3)
  - C-reactive protein increased [Recovering/Resolving]
  - Anaemia [Recovering/Resolving]
  - Small intestine carcinoma [Recovering/Resolving]

NARRATIVE: CASE EVENT DATE: 20140408
